FAERS Safety Report 7991845 (Version 5)
Quarter: 2013Q1

REPORT INFORMATION
  Report Type: Spontaneous
  Country: US (occurrence: US)
  Receive Date: 20110615
  Receipt Date: 20130212
  Transmission Date: 20140127
  Serious: Yes (Hospitalization, Congenital Anomaly, Other)
  Sender: FDA-Public Use
  Company Number: US-PFIZER INC-2011127602

PATIENT
  Age: 3 Week
  Sex: Female

DRUGS (7)
  1. ZOLOFT [Suspect]
     Dosage: UNK
     Route: 064
     Dates: start: 2001
  2. FLAGYL [Concomitant]
     Dosage: 500 MG, 2X/DAY
     Route: 064
     Dates: start: 20020416
  3. PRENATAL VITAMINS [Concomitant]
     Dosage: UNK
     Route: 064
  4. ORTHO EVRA [Concomitant]
     Dosage: UNK
     Route: 064
  5. ALBUTEROL [Concomitant]
     Dosage: UNK
     Route: 064
  6. ALLEGRA [Concomitant]
     Dosage: UNK
     Route: 064
  7. SINGULAIR [Concomitant]
     Dosage: UNK
     Route: 064

REACTIONS (14)
  - Foetal exposure during pregnancy [Unknown]
  - Heart disease congenital [Not Recovered/Not Resolved]
  - Ventricular septal defect [Unknown]
  - Transposition of the great vessels [Not Recovered/Not Resolved]
  - Double outlet right ventricle [Not Recovered/Not Resolved]
  - Patent ductus arteriosus [Unknown]
  - Atrial septal defect [Unknown]
  - Heterotaxia [Unknown]
  - Tricuspid valve incompetence [Unknown]
  - Mitral valve incompetence [Unknown]
  - Congenital aortic valve incompetence [Unknown]
  - Sinus arrhythmia [Unknown]
  - Right ventricular hypertrophy [Unknown]
  - Vascular anomaly [Unknown]
